FAERS Safety Report 11936245 (Version 1)
Quarter: 2016Q1

REPORT INFORMATION
  Report Type: Spontaneous
  Country: GB (occurrence: GB)
  Receive Date: 20160121
  Receipt Date: 20160121
  Transmission Date: 20160526
  Serious: Yes (Other)
  Sender: FDA-Public Use
  Company Number: GB-TEVA-625339ACC

PATIENT
  Age: 63 Year
  Sex: Female
  Weight: 70 kg

DRUGS (16)
  1. CROTAMITON [Concomitant]
     Active Substance: CROTAMITON
     Dosage: APPLY
     Dates: start: 20151104, end: 20151116
  2. PREDNISOLONE. [Concomitant]
     Active Substance: PREDNISOLONE
     Dosage: 5 ONCE DAILY (DAY ONE), 4 ONCE DAILY (DAY TWO),...
     Dates: start: 20151104, end: 20151109
  3. SALBUTAMOL [Concomitant]
     Active Substance: ALBUTEROL
     Dosage: 1 - 2 PUFFS UPTO 4 TIMES DAILY
     Dates: start: 20150813
  4. SYMBICORT [Concomitant]
     Active Substance: BUDESONIDE\FORMOTEROL FUMARATE DIHYDRATE
     Dosage: 4 DOSAGE FORMS DAILY; MAX 8 PUFFS IN 24 HRS; DAILY DOSE: 4 DOSAGE FORMS
     Dates: start: 20150813
  5. TRAZODONE [Suspect]
     Active Substance: TRAZODONE HYDROCHLORIDE
     Dates: start: 20151104
  6. FULTIUM-D3 [Concomitant]
     Dosage: 1 DOSAGE FORMS DAILY; LONG TERM; DAILY DOSE: 1 DOSAGE FORM
     Dates: start: 20150930
  7. LANSOPRAZOLE. [Concomitant]
     Active Substance: LANSOPRAZOLE
     Dosage: 1 DOSAGE FORMS DAILY;
     Dates: start: 20150813
  8. FEXOFENADINE [Concomitant]
     Active Substance: FEXOFENADINE\FEXOFENADINE HYDROCHLORIDE
     Dosage: ONE DAILY
     Dates: start: 20151104
  9. SIMVADOR [Concomitant]
     Active Substance: SIMVASTATIN
     Dosage: 1 DOSAGE FORMS DAILY;
     Dates: start: 20150813
  10. EXENATIDE [Concomitant]
     Active Substance: EXENATIDE
     Dosage: USE AS DIRECTED
     Dates: start: 20150813
  11. NOVOMIX [Concomitant]
     Active Substance: INSULIN ASPART
     Dosage: AS DIRECTED
     Dates: start: 20150813
  12. AMOXICILLIN. [Concomitant]
     Active Substance: AMOXICILLIN
     Dosage: 3 DOSAGE FORMS DAILY;
     Dates: start: 20151021, end: 20151028
  13. BETAMETHASONE VALERATE. [Concomitant]
     Active Substance: BETAMETHASONE VALERATE
     Dosage: 2 DOSAGE FORMS DAILY; APPLY. 7-10 DAYS; DAILY DOSE: 2 DOSAGE FORMS
     Dates: start: 20151104, end: 20151114
  14. COCODAMOL [Concomitant]
     Active Substance: ACETAMINOPHEN\CODEINE PHOSPHATE
     Dosage: 1 OR 2 TO BE TAKEN 4 TIMES DAILY
     Dates: start: 20150813
  15. LISINOPRIL. [Concomitant]
     Active Substance: LISINOPRIL
     Dosage: 1 DOSAGE FORMS DAILY;
     Dates: start: 20150813
  16. AMITRIPTYLINE HYDROCHLORIDE. [Concomitant]
     Active Substance: AMITRIPTYLINE HYDROCHLORIDE
     Dosage: AT NIGHT.
     Dates: start: 20150813, end: 20151012

REACTIONS (3)
  - Hypersensitivity [Recovered/Resolved]
  - Urticaria [Recovered/Resolved]
  - Stevens-Johnson syndrome [Recovered/Resolved]

NARRATIVE: CASE EVENT DATE: 20151104
